FAERS Safety Report 12350491 (Version 1)
Quarter: 2016Q2

REPORT INFORMATION
  Report Type: Other
  Country: GB (occurrence: GB)
  Receive Date: 20160510
  Receipt Date: 20160510
  Transmission Date: 20160815
  Serious: Yes (Hospitalization, Disabling, Other)
  Sender: FDA-Public Use
  Company Number: GB-ENDO PHARMACEUTICALS INC-2016-002954

PATIENT
  Age: 32 Year
  Sex: Male

DRUGS (3)
  1. OXYMETHOLONE [Suspect]
     Active Substance: OXYMETHOLONE
     Indication: MUSCLE HYPERTROPHY
     Route: 065
     Dates: start: 2012, end: 201503
  2. DELATESTRYL [Suspect]
     Active Substance: TESTOSTERONE ENANTHATE
     Indication: MUSCLE HYPERTROPHY
     Route: 065
     Dates: start: 2012, end: 201503
  3. TURINABOL-DEPOT [Suspect]
     Active Substance: NANDROLONE DECANOATE
     Indication: MUSCLE HYPERTROPHY
     Route: 048
     Dates: start: 2012, end: 201503

REACTIONS (4)
  - Intentional product misuse [Recovered/Resolved]
  - Cerebral infarction [Recovered/Resolved]
  - Deafness neurosensory [Not Recovered/Not Resolved]
  - Polycythaemia [Recovered/Resolved]

NARRATIVE: CASE EVENT DATE: 2012
